FAERS Safety Report 9115171 (Version 2)
Quarter: 2013Q1

REPORT INFORMATION
  Report Type: Spontaneous
  Country: DE (occurrence: DE)
  Receive Date: 20130225
  Receipt Date: 20130329
  Transmission Date: 20140127
  Serious: Yes (Life-Threatening, Hospitalization, Other)
  Sender: FDA-Public Use
  Company Number: DE-JNJFOC-20130211545

PATIENT
  Sex: Male
  Weight: 90 kg

DRUGS (1)
  1. XARELTO [Suspect]
     Indication: PRODUCT USED FOR UNKNOWN INDICATION
     Route: 048

REACTIONS (4)
  - Atrioventricular block [Unknown]
  - Atrioventricular block complete [Unknown]
  - Syncope [Unknown]
  - Dizziness [Unknown]
